FAERS Safety Report 8186763-0 (Version None)
Quarter: 2012Q1

REPORT INFORMATION
  Report Type: 
  Country: None (occurrence: None)
  Receive Date: 20120301
  Receipt Date: 20120223
  Transmission Date: 20120608
  Serious: Yes (Hospitalization, Other)
  Sender: FDA-Public Use
  Company Number: 2009SP020705

PATIENT
  Age: 20 Year
  Sex: Female
  Weight: 83.9154 kg

DRUGS (2)
  1. TYLENOL [Concomitant]
  2. NUVARING [Suspect]
     Indication: CONTRACEPTION
     Dosage: ; VAG
     Route: 067
     Dates: start: 20040622, end: 20061201

REACTIONS (36)
  - NECK PAIN [None]
  - DERMATITIS CONTACT [None]
  - LIMB INJURY [None]
  - CYST [None]
  - ABORTION INDUCED [None]
  - PULMONARY EMBOLISM [None]
  - BRONCHITIS [None]
  - ACUTE SINUSITIS [None]
  - CONTUSION [None]
  - NECK INJURY [None]
  - CAESAREAN SECTION [None]
  - URINARY TRACT INFECTION [None]
  - ROAD TRAFFIC ACCIDENT [None]
  - NO THERAPEUTIC RESPONSE [None]
  - VULVOVAGINITIS TRICHOMONAL [None]
  - VITAMIN B12 DECREASED [None]
  - LACERATION [None]
  - INJURY [None]
  - ASTHMA [None]
  - FALL [None]
  - HUMERUS FRACTURE [None]
  - UPPER RESPIRATORY TRACT INFECTION [None]
  - INCISION SITE PAIN [None]
  - BACK PAIN [None]
  - FUNGAL INFECTION [None]
  - MUSCLE STRAIN [None]
  - ABDOMINAL PAIN [None]
  - PHARYNGITIS [None]
  - MIGRAINE [None]
  - TINEA CRURIS [None]
  - PAIN IN EXTREMITY [None]
  - ARTHRALGIA [None]
  - HYPERCHOLESTEROLAEMIA [None]
  - CONJUNCTIVITIS [None]
  - SINUS BRADYCARDIA [None]
  - BRONCHIAL HYPERREACTIVITY [None]
